FAERS Safety Report 20482410 (Version 1)
Quarter: 2022Q1

REPORT INFORMATION
  Report Type: Report from Study
  Country: PK (occurrence: PK)
  Receive Date: 20220217
  Receipt Date: 20220217
  Transmission Date: 20220423
  Serious: Yes (Other)
  Sender: FDA-Public Use
  Company Number: PK-NOVARTISPH-NVSC2022PK033917

PATIENT
  Age: 52 Year
  Sex: Female
  Weight: 60 kg

DRUGS (1)
  1. KISQALI [Suspect]
     Active Substance: RIBOCICLIB
     Indication: Breast cancer metastatic
     Dosage: 600 MG, QD
     Route: 065
     Dates: start: 20211116, end: 20220208

REACTIONS (1)
  - Bicytopenia [Not Recovered/Not Resolved]

NARRATIVE: CASE EVENT DATE: 20220208
